FAERS Safety Report 8998766 (Version 1)
Quarter: 2013Q1

REPORT INFORMATION
  Report Type: Spontaneous
  Country: US (occurrence: US)
  Receive Date: 20130103
  Receipt Date: 20130103
  Transmission Date: 20140127
  Serious: Yes (Hospitalization)
  Sender: FDA-Public Use
  Company Number: US-BIOGENIDEC-2012BI065127

PATIENT
  Sex: Male

DRUGS (1)
  1. TYSABRI [Suspect]
     Indication: MULTIPLE SCLEROSIS
     Route: 042
     Dates: start: 20120530

REACTIONS (5)
  - Cardiac disorder [Recovered/Resolved]
  - Asthma [Recovered/Resolved]
  - Multiple sclerosis relapse [Recovered/Resolved]
  - Eye disorder [Recovered/Resolved]
  - Mental disorder [Unknown]
